FAERS Safety Report 17139637 (Version 1)
Quarter: 2019Q4

REPORT INFORMATION
  Report Type: Spontaneous
  Country: DE (occurrence: DE)
  Receive Date: 20191211
  Receipt Date: 20191211
  Transmission Date: 20200122
  Serious: Yes (Other)
  Sender: FDA-Public Use
  Company Number: DE-GLAXOSMITHKLINE-DE2019220549

PATIENT
  Age: 65 Year
  Sex: Male

DRUGS (1)
  1. BENLYSTA [Suspect]
     Active Substance: BELIMUMAB
     Indication: PRODUCT USED FOR UNKNOWN INDICATION
     Dosage: UNK
     Route: 058
     Dates: start: 20190101

REACTIONS (6)
  - Sedation [Unknown]
  - Bowel movement irregularity [Unknown]
  - Haematochezia [Unknown]
  - Disturbance in attention [Unknown]
  - Sleep disorder [Unknown]
  - Mental impairment [Unknown]

NARRATIVE: CASE EVENT DATE: 20190104
